FAERS Safety Report 24675999 (Version 1)
Quarter: 2024Q4

REPORT INFORMATION
  Report Type: Report from Study
  Country: DE (occurrence: DE)
  Receive Date: 20241128
  Receipt Date: 20241128
  Transmission Date: 20250115
  Serious: Yes (Hospitalization)
  Sender: ABBVIE
  Company Number: DE-ABBVIE-6023040

PATIENT
  Age: 82 Year
  Sex: Male

DRUGS (1)
  1. FOSCARBIDOPA\FOSLEVODOPA [Suspect]
     Active Substance: FOSCARBIDOPA\FOSLEVODOPA
     Indication: Parkinson^s disease
     Dosage: CRN 0.25 ML/H, CR 0.32 ML/H, CRH 0.38 ML/H, ED 0.15 ML
     Route: 058
     Dates: start: 20241112

REACTIONS (3)
  - Movement disorder [Unknown]
  - On and off phenomenon [Unknown]
  - Dyskinesia [Unknown]

NARRATIVE: CASE EVENT DATE: 20240101
